FAERS Safety Report 9016725 (Version 1)
Quarter: 2013Q1

REPORT INFORMATION
  Report Type: Report from Study
  Country: GB (occurrence: GB)
  Receive Date: 20130116
  Receipt Date: 20130116
  Transmission Date: 20140127
  Serious: Yes (Other)
  Sender: FDA-Public Use
  Company Number: GB-SANOFI-AVENTIS-2013SA002495

PATIENT
  Age: 65 Year
  Sex: Male
  Weight: 72.5 kg

DRUGS (5)
  1. ELOXATIN [Suspect]
     Indication: CHEMOTHERAPY
     Route: 042
     Dates: start: 20090119, end: 20090330
  2. IRINOTECAN [Suspect]
     Indication: CHEMOTHERAPY
     Route: 065
  3. FLUOROURACIL [Suspect]
     Indication: CHEMOTHERAPY
     Route: 065
  4. FOLINIC ACID [Suspect]
     Indication: CHEMOTHERAPY
     Route: 065
  5. CAPECITABINE [Suspect]
     Indication: CHEMOTHERAPY
     Route: 048
     Dates: start: 20090312, end: 20090312

REACTIONS (4)
  - Angina pectoris [Recovered/Resolved]
  - Abdominal pain [Recovered/Resolved]
  - Neuropathy peripheral [Recovered/Resolved]
  - Constipation [Recovered/Resolved]
